FAERS Safety Report 20049988 (Version 1)
Quarter: 2021Q4

REPORT INFORMATION
  Report Type: Spontaneous
  Country: US (occurrence: None)
  Receive Date: 20211108
  Receipt Date: 20211108
  Transmission Date: 20220303
  Serious: Yes (Death)
  Sender: FDA-Public Use
  Company Number: None

PATIENT
  Age: 65 Year
  Sex: Male

DRUGS (12)
  1. DOFETILIDE [Suspect]
     Active Substance: DOFETILIDE
     Indication: Arteriosclerosis coronary artery
     Dosage: FREQUENCY : TWICE A DAY;?
     Route: 048
     Dates: start: 20191030, end: 20211013
  2. BUPROPION HYDROCHLORIDE [Concomitant]
     Active Substance: BUPROPION HYDROCHLORIDE
  3. ESOMEPRAZOLE MAGNESIUM [Concomitant]
     Active Substance: ESOMEPRAZOLE MAGNESIUM
  4. FUROSEMIDE [Concomitant]
     Active Substance: FUROSEMIDE
  5. HUMALOG KWIK [Concomitant]
  6. IPRATROPIUM SPR [Concomitant]
  7. JANTOVEN [Concomitant]
     Active Substance: WARFARIN SODIUM
  8. PRAVASTATIN [Concomitant]
     Active Substance: PRAVASTATIN
  9. PROPRANOLOL [Concomitant]
     Active Substance: PROPRANOLOL HYDROCHLORIDE
  10. SPIRONOLACTONE [Concomitant]
     Active Substance: SPIRONOLACTONE
  11. URSODIOL [Concomitant]
     Active Substance: URSODIOL
  12. WARFARIN [Concomitant]
     Active Substance: WARFARIN

REACTIONS (2)
  - Cardiac arrest [None]
  - Hepatic failure [None]

NARRATIVE: CASE EVENT DATE: 20211013
